FAERS Safety Report 11964502 (Version 2)
Quarter: 2016Q3

REPORT INFORMATION
  Report Type: Spontaneous
  Country: US (occurrence: US)
  Receive Date: 20160127
  Receipt Date: 20160829
  Transmission Date: 20161109
  Serious: No
  Sender: FDA-Public Use
  Company Number: US-ASTRAZENECA-2016SE05932

PATIENT
  Sex: Female
  Weight: 54.4 kg

DRUGS (6)
  1. TUDORZA PRESSAIR [Suspect]
     Active Substance: ACLIDINIUM BROMIDE
     Indication: BRONCHOSPASM
     Route: 055
  2. TUDORZA PRESSAIR [Suspect]
     Active Substance: ACLIDINIUM BROMIDE
     Indication: DIAPHRAGMATIC DISORDER
     Route: 055
  3. TUDORZA PRESSAIR [Suspect]
     Active Substance: ACLIDINIUM BROMIDE
     Indication: MALIGNANT NEOPLASM OF THORAX
     Route: 055
     Dates: start: 201601
  4. TUDORZA PRESSAIR [Suspect]
     Active Substance: ACLIDINIUM BROMIDE
     Indication: MALIGNANT NEOPLASM OF THORAX
     Route: 055
  5. TUDORZA PRESSAIR [Suspect]
     Active Substance: ACLIDINIUM BROMIDE
     Indication: DIAPHRAGMATIC DISORDER
     Route: 055
     Dates: start: 201601
  6. TUDORZA PRESSAIR [Suspect]
     Active Substance: ACLIDINIUM BROMIDE
     Indication: BRONCHOSPASM
     Route: 055
     Dates: start: 201601

REACTIONS (4)
  - Respiratory distress [Unknown]
  - Drug dose omission [Unknown]
  - Device malfunction [Unknown]
  - Product use issue [Unknown]
